FAERS Safety Report 21915429 (Version 1)
Quarter: 2023Q1

REPORT INFORMATION
  Report Type: Spontaneous
  Country: DE (occurrence: None)
  Receive Date: 20230126
  Receipt Date: 20230126
  Transmission Date: 20230418
  Serious: Yes (Hospitalization, Other)
  Sender: FDA-Public Use
  Company Number: 2023A013908

PATIENT
  Age: 1 Day
  Sex: Female
  Weight: 3.5 kg

DRUGS (2)
  1. QUETIAPINE [Suspect]
     Active Substance: QUETIAPINE
     Indication: Bipolar disorder
     Dosage: 275 [MG/D (200 MG RETARD, 75 MG NON-RETARDED) ]
     Route: 064
     Dates: start: 20210511, end: 20220215
  2. INSULIN NOS [Concomitant]
     Active Substance: INSULIN NOS
     Indication: Type 2 diabetes mellitus
     Route: 064

REACTIONS (7)
  - Neonatal seizure [Recovering/Resolving]
  - Cerebral infarction [Recovering/Resolving]
  - Hypotonia neonatal [Unknown]
  - Respiratory disorder neonatal [Recovered/Resolved]
  - Neonatal hypoxia [Recovered/Resolved]
  - Infantile apnoea [Recovered/Resolved]
  - Foetal exposure during pregnancy [Unknown]

NARRATIVE: CASE EVENT DATE: 20220201
